FAERS Safety Report 9642078 (Version 31)
Quarter: 2016Q4

REPORT INFORMATION
  Report Type: Report from Study
  Country: CA (occurrence: CA)
  Receive Date: 20131023
  Receipt Date: 20161208
  Transmission Date: 20170207
  Serious: Yes (Other)
  Sender: FDA-Public Use
  Company Number: CA-ROCHE-1292324

PATIENT
  Age: 59 Year
  Sex: Male
  Weight: 131 kg

DRUGS (20)
  1. ACTEMRA [Suspect]
     Active Substance: TOCILIZUMAB
     Route: 042
     Dates: start: 20150106
  2. ACCURETIC [Concomitant]
     Active Substance: HYDROCHLOROTHIAZIDE\QUINAPRIL HYDROCHLORIDE
  3. ACTEMRA [Suspect]
     Active Substance: TOCILIZUMAB
     Route: 042
     Dates: start: 20150303
  4. ACTEMRA [Suspect]
     Active Substance: TOCILIZUMAB
     Indication: RHEUMATOID ARTHRITIS
     Route: 042
     Dates: start: 20130725
  5. ACTEMRA [Suspect]
     Active Substance: TOCILIZUMAB
     Route: 042
     Dates: start: 20141209
  6. FOLIC ACID. [Concomitant]
     Active Substance: FOLIC ACID
  7. ACTEMRA [Suspect]
     Active Substance: TOCILIZUMAB
     Route: 042
     Dates: start: 20140915
  8. ACTEMRA [Suspect]
     Active Substance: TOCILIZUMAB
     Route: 042
     Dates: start: 20141110
  9. DICLOFENAC [Concomitant]
     Active Substance: DICLOFENAC
  10. ACTEMRA [Suspect]
     Active Substance: TOCILIZUMAB
     Route: 042
     Dates: start: 20150331
  11. KEPPRA [Concomitant]
     Active Substance: LEVETIRACETAM
  12. HYDROXYCHLOROQUINE [Concomitant]
     Active Substance: HYDROXYCHLOROQUINE
  13. METHOTREXATE. [Concomitant]
     Active Substance: METHOTREXATE
  14. ACTEMRA [Suspect]
     Active Substance: TOCILIZUMAB
     Route: 042
     Dates: start: 20150428
  15. DILAUDID [Concomitant]
     Active Substance: HYDROMORPHONE HYDROCHLORIDE
  16. ACTEMRA [Suspect]
     Active Substance: TOCILIZUMAB
     Route: 042
     Dates: start: 20141015
  17. NORVASC [Concomitant]
     Active Substance: AMLODIPINE BESYLATE
  18. ACTEMRA [Suspect]
     Active Substance: TOCILIZUMAB
     Route: 042
     Dates: start: 20150205
  19. CRESTOR [Concomitant]
     Active Substance: ROSUVASTATIN CALCIUM
  20. NEXIUM [Concomitant]
     Active Substance: ESOMEPRAZOLE MAGNESIUM

REACTIONS (22)
  - Blood pressure systolic abnormal [Unknown]
  - Infusion related reaction [Unknown]
  - Oxygen saturation decreased [Unknown]
  - Pulmonary oedema [Not Recovered/Not Resolved]
  - Diarrhoea [Not Recovered/Not Resolved]
  - Anger [Unknown]
  - Peripheral swelling [Not Recovered/Not Resolved]
  - Oxygen saturation decreased [Unknown]
  - Neck pain [Not Recovered/Not Resolved]
  - Musculoskeletal pain [Not Recovered/Not Resolved]
  - Arthritis [Not Recovered/Not Resolved]
  - Fatigue [Not Recovered/Not Resolved]
  - Pain in extremity [Not Recovered/Not Resolved]
  - Drug ineffective [Unknown]
  - Arthralgia [Unknown]
  - Hypotension [Unknown]
  - Blood pressure systolic decreased [Unknown]
  - Weight fluctuation [Unknown]
  - Anal incontinence [Unknown]
  - Blood pressure increased [Unknown]
  - Abdominal pain [Unknown]
  - Weight increased [Recovering/Resolving]

NARRATIVE: CASE EVENT DATE: 2014
